FAERS Safety Report 25166760 (Version 1)
Quarter: 2025Q2

REPORT INFORMATION
  Report Type: Report from Study
  Country: US (occurrence: US)
  Receive Date: 20250407
  Receipt Date: 20250407
  Transmission Date: 20250717
  Serious: Yes (Hospitalization)
  Sender: ROCHE
  Company Number: US-ROCHE-10000248604

PATIENT
  Age: 40 Year
  Sex: Male
  Weight: 90.718 kg

DRUGS (6)
  1. VENCLEXTA [Suspect]
     Active Substance: VENETOCLAX
     Indication: Chronic lymphocytic leukaemia
     Route: 048
     Dates: end: 20250108
  2. VENCLEXTA [Suspect]
     Active Substance: VENETOCLAX
     Dosage: 100 MG, EVERY 1 DAY.
     Route: 048
     Dates: end: 20250115
  3. VENCLEXTA [Suspect]
     Active Substance: VENETOCLAX
     Dosage: 100 MG ONE PER DAY.
     Route: 048
     Dates: end: 20250122
  4. VENCLEXTA [Suspect]
     Active Substance: VENETOCLAX
     Route: 048
     Dates: end: 20250129
  5. VENCLEXTA [Suspect]
     Active Substance: VENETOCLAX
     Route: 048
  6. GAZYVA [Suspect]
     Active Substance: OBINUTUZUMAB
     Indication: Chronic lymphocytic leukaemia
     Route: 042
     Dates: start: 20241204

REACTIONS (9)
  - Heart rate increased [Recovered/Resolved]
  - Cough [Recovered/Resolved]
  - Supraventricular tachycardia [Unknown]
  - Nasopharyngitis [Recovered/Resolved]
  - Pneumonia [Unknown]
  - Magnesium deficiency [Not Recovered/Not Resolved]
  - Oropharyngeal pain [Recovered/Resolved]
  - Pyrexia [Recovered/Resolved]
  - Hypokalaemia [Not Recovered/Not Resolved]

NARRATIVE: CASE EVENT DATE: 20250101
